FAERS Safety Report 23936016 (Version 9)
Quarter: 2025Q1

REPORT INFORMATION
  Report Type: Report from Study
  Country: CA (occurrence: CA)
  Receive Date: 20240604
  Receipt Date: 20250314
  Transmission Date: 20250409
  Serious: Yes (Other)
  Sender: JOHNSON AND JOHNSON
  Company Number: CA-JNJFOC-20240580501

PATIENT
  Age: 33 Year
  Sex: Female
  Weight: 117.93 kg

DRUGS (8)
  1. STELARA [Suspect]
     Active Substance: USTEKINUMAB
     Indication: Crohn^s disease
     Route: 058
     Dates: start: 20230524
  2. STELARA [Suspect]
     Active Substance: USTEKINUMAB
     Indication: Chronic spontaneous urticaria
     Route: 058
     Dates: start: 20230309
  3. STELARA [Suspect]
     Active Substance: USTEKINUMAB
     Route: 058
     Dates: start: 20240828
  4. STELARA [Suspect]
     Active Substance: USTEKINUMAB
     Route: 058
  5. STELARA [Suspect]
     Active Substance: USTEKINUMAB
     Route: 058
  6. PNEUMOCOCCAL VACCINE POLYVALENT [Suspect]
     Active Substance: PNEUMOCOCCAL VACCINE POLYVALENT
  7. PENTASA [Concomitant]
     Active Substance: MESALAMINE
  8. BUDESONIDE [Concomitant]
     Active Substance: BUDESONIDE

REACTIONS (10)
  - Septic shock [Unknown]
  - Polycystic ovarian syndrome [Recovered/Resolved]
  - Pneumonia [Not Recovered/Not Resolved]
  - Product dose omission issue [Unknown]
  - Tooth extraction [Unknown]
  - Ear infection [Recovered/Resolved]
  - Peripheral swelling [Unknown]
  - Erythema [Unknown]
  - Treatment noncompliance [Unknown]
  - Nasopharyngitis [Recovered/Resolved]

NARRATIVE: CASE EVENT DATE: 20240518
